FAERS Safety Report 24941700 (Version 1)
Quarter: 2025Q1

REPORT INFORMATION
  Report Type: Spontaneous
  Country: IR (occurrence: IR)
  Receive Date: 20250207
  Receipt Date: 20250207
  Transmission Date: 20250408
  Serious: Yes (Hospitalization, Disabling, Other)
  Sender: AMNEAL
  Company Number: IR-AMNEAL PHARMACEUTICALS-2025-AMRX-00367

PATIENT
  Age: 8 Year
  Sex: Male

DRUGS (2)
  1. METHOTREXATE [Suspect]
     Active Substance: METHOTREXATE
     Indication: B-cell type acute leukaemia
     Route: 037
  2. VINCRISTINE [Concomitant]
     Active Substance: VINCRISTINE
     Indication: B-cell type acute leukaemia

REACTIONS (2)
  - Cauda equina syndrome [Recovering/Resolving]
  - Neurotoxicity [Recovering/Resolving]
